FAERS Safety Report 17266742 (Version 1)
Quarter: 2020Q1

REPORT INFORMATION
  Report Type: Spontaneous
  Country: US (occurrence: US)
  Receive Date: 20200113
  Receipt Date: 20200113
  Transmission Date: 20200409
  Serious: Yes (Life-Threatening, Hospitalization)
  Sender: FDA-Public Use
  Company Number: None

PATIENT
  Age: 35 Year
  Sex: Female
  Weight: 135 kg

DRUGS (5)
  1. SERTRALINE 25 MG PO DAILY [Concomitant]
  2. ATORVASTATIN 10MG PO DAILY [Concomitant]
  3. METFORMIN 2000MG PO DAILY AT BEDTIME [Concomitant]
  4. BUSPIRONE 15MG PO DAILY [Concomitant]
  5. INVOKANA [Suspect]
     Active Substance: CANAGLIFLOZIN
     Indication: TYPE 2 DIABETES MELLITUS
     Route: 048

REACTIONS (16)
  - Influenza A virus test positive [None]
  - Anion gap increased [None]
  - Diabetic ketoacidosis [None]
  - Blood triglycerides increased [None]
  - Low density lipoprotein increased [None]
  - Nausea [None]
  - Blood cholesterol increased [None]
  - Vomiting [None]
  - Hypertension [None]
  - Blood creatinine increased [None]
  - High density lipoprotein decreased [None]
  - Tachycardia [None]
  - Blood glucose increased [None]
  - Urinary tract infection [None]
  - Leukocytosis [None]
  - Influenza B virus test positive [None]

NARRATIVE: CASE EVENT DATE: 20200109
